FAERS Safety Report 9601653 (Version 1)
Quarter: 2013Q4

REPORT INFORMATION
  Report Type: Report from Study
  Country: CA (occurrence: CA)
  Receive Date: 20131007
  Receipt Date: 20131007
  Transmission Date: 20140711
  Serious: Yes (Other)
  Sender: FDA-Public Use
  Company Number: CA-JNJFOC-20130917789

PATIENT
  Age: 66 Year
  Sex: Male
  Weight: 85.2 kg

DRUGS (7)
  1. REMICADE [Suspect]
     Indication: CROHN^S DISEASE
     Route: 042
     Dates: start: 20130828
  2. REMICADE [Suspect]
     Indication: CROHN^S DISEASE
     Route: 042
     Dates: start: 20130815
  3. SOTALOL [Concomitant]
     Route: 065
  4. VIAGRA [Concomitant]
     Route: 065
  5. ASA [Concomitant]
     Route: 065
  6. TECTA [Concomitant]
     Route: 065
  7. B12 SHOT [Concomitant]
     Route: 065

REACTIONS (3)
  - Paraesthesia [Not Recovered/Not Resolved]
  - Diarrhoea [Not Recovered/Not Resolved]
  - Mucous stools [Not Recovered/Not Resolved]
